FAERS Safety Report 7247504-4 (Version None)
Quarter: 2011Q1

REPORT INFORMATION
  Report Type: 
  Country: None (occurrence: None)
  Receive Date: 20110127
  Receipt Date: 20110119
  Transmission Date: 20110831
  Serious: Yes (Other)
  Sender: FDA-Public Use
  Company Number: CH-ROCHE-749882

PATIENT
  Age: 38 Year
  Sex: Female

DRUGS (4)
  1. ROACUTAN [Suspect]
     Route: 048
     Dates: start: 20101001, end: 20101209
  2. ROACUTAN [Suspect]
     Route: 048
     Dates: start: 20100701, end: 20101001
  3. DROSPIRENONE AND ETHINYL ESTRADIOL [Concomitant]
     Indication: CONTRACEPTION
  4. ROACUTAN [Suspect]
     Indication: ACNE
     Route: 048

REACTIONS (2)
  - ABORTION SPONTANEOUS [None]
  - NO ADVERSE EVENT [None]
